FAERS Safety Report 7592235-4 (Version None)
Quarter: 2011Q3

REPORT INFORMATION
  Report Type: 
  Country: None (occurrence: None)
  Receive Date: 20110706
  Receipt Date: 20110623
  Transmission Date: 20111222
  Serious: Yes (Disabling)
  Sender: FDA-Public Use
  Company Number: US-ELI_LILLY_AND_COMPANY-US201106007498

PATIENT
  Sex: Female

DRUGS (3)
  1. ALLOPURINOL [Concomitant]
  2. LIPITOR [Concomitant]
  3. EVISTA [Suspect]
     Indication: BONE DISORDER
     Dosage: 60 MG, QD

REACTIONS (4)
  - OEDEMA PERIPHERAL [None]
  - BONE MARROW OEDEMA [None]
  - PALPITATIONS [None]
  - DISABILITY [None]
